FAERS Safety Report 10728403 (Version 2)
Quarter: 2015Q3

REPORT INFORMATION
  Report Type: Spontaneous
  Country: US (occurrence: US)
  Receive Date: 20150122
  Receipt Date: 20150727
  Transmission Date: 20151125
  Serious: No
  Sender: FDA-Public Use
  Company Number: US-AMGEN INC.-USASL2015004382

PATIENT
  Age: 86 Year
  Sex: Male

DRUGS (1)
  1. ENBREL [Suspect]
     Active Substance: ETANERCEPT
     Indication: RHEUMATOID ARTHRITIS
     Dosage: 50 MG, QWK (WEEKLY)
     Route: 058
     Dates: start: 2005

REACTIONS (7)
  - Epistaxis [Unknown]
  - Sinus disorder [Unknown]
  - Dyspnoea [Unknown]
  - Injection site pruritus [Unknown]
  - Injection site reaction [Unknown]
  - Headache [Unknown]
  - Limb discomfort [Unknown]
